FAERS Safety Report 20143173 (Version 1)
Quarter: 2021Q4

REPORT INFORMATION
  Report Type: Report from Study
  Country: US (occurrence: US)
  Receive Date: 20211203
  Receipt Date: 20211203
  Transmission Date: 20220304
  Serious: No
  Sender: FDA-Public Use
  Company Number: US-BIOVITRUM-2021US5105

PATIENT
  Age: 6 Year
  Sex: Female

DRUGS (2)
  1. KINERET [Suspect]
     Active Substance: ANAKINRA
     Indication: Still^s disease
     Route: 058
     Dates: start: 20210525
  2. COVID-19 VACCINE NOS [Suspect]
     Active Substance: COVID-19 VACCINE NOS

REACTIONS (9)
  - Weight increased [Unknown]
  - Alopecia [Unknown]
  - Fatigue [Recovering/Resolving]
  - Blood pressure increased [Unknown]
  - Inflammation [Recovering/Resolving]
  - Nasopharyngitis [Unknown]
  - Dry skin [Unknown]
  - Injection site swelling [Unknown]
  - Off label use [Not Recovered/Not Resolved]

NARRATIVE: CASE EVENT DATE: 20210525
